FAERS Safety Report 6762305-9 (Version None)
Quarter: 2010Q2

REPORT INFORMATION
  Report Type: 
  Country: None (occurrence: None)
  Receive Date: 20100609
  Receipt Date: 20100113
  Transmission Date: 20101027
  Serious: Yes (Other)
  Sender: FDA-Public Use
  Company Number: US-SANOFI-AVENTIS-2010SA002303

PATIENT
  Age: 56 Year
  Sex: Female

DRUGS (5)
  1. PLAVIX [Suspect]
     Route: 048
     Dates: start: 20000101
  2. CARDIZEM CD [Concomitant]
  3. IMDUR [Concomitant]
  4. LIPITOR [Concomitant]
  5. ZETIA [Concomitant]

REACTIONS (3)
  - CORONARY ARTERY OCCLUSION [None]
  - FATIGUE [None]
  - POLYCYTHAEMIA VERA [None]
